FAERS Safety Report 5954115-7 (Version None)
Quarter: 2008Q4

REPORT INFORMATION
  Report Type: 
  Country: None (occurrence: None)
  Receive Date: 20081117
  Receipt Date: 20081110
  Transmission Date: 20090506
  Serious: Yes (Other)
  Sender: FDA-Public Use
  Company Number: GB-RANBAXY-2008RR-19201

PATIENT
  Age: 75 Year
  Sex: Female

DRUGS (11)
  1. SIMVASTATIN [Suspect]
     Dosage: 40 MG, QD
     Route: 048
     Dates: start: 20081023, end: 20081029
  2. AMISULPRIDE [Concomitant]
  3. ASPIRIN [Concomitant]
  4. ACETAMINOPHEN W/ CODEINE [Concomitant]
  5. LISINOPRIL [Concomitant]
  6. LORAZEPAM [Concomitant]
  7. MEBEVERINE HYDROCHLORIDE [Concomitant]
  8. METFORMIN HCL [Concomitant]
  9. PAROXETINE HCL [Concomitant]
  10. VALPROATE SODIUM [Concomitant]
  11. ZOPICLONE [Concomitant]

REACTIONS (3)
  - AGITATION [None]
  - CONDITION AGGRAVATED [None]
  - CONFUSIONAL STATE [None]
